FAERS Safety Report 4930675-X (Version None)
Quarter: 2006Q1

REPORT INFORMATION
  Report Type: 
  Country: None (occurrence: None)
  Receive Date: 20060227
  Receipt Date: 20060216
  Transmission Date: 20060701
  Serious: Yes (Hospitalization)
  Sender: FDA-Public Use
  Company Number: 430011M06USA

PATIENT
  Age: 49 Year
  Sex: Female

DRUGS (2)
  1. NOVANTRONE [Suspect]
     Indication: MULTIPLE SCLEROSIS
     Dosage: CYCLE, INTRAVENOUS
     Route: 042
     Dates: end: 20040701
  2. REBIF [Suspect]
     Indication: MULTIPLE SCLEROSIS
     Dosage: 44 MCG, 3 IN 1 WEEKS, SUBCUTANEOUS
     Route: 058
     Dates: start: 20041001, end: 20050501

REACTIONS (2)
  - ACUTE MYELOID LEUKAEMIA [None]
  - THROMBOCYTOPENIA [None]
